FAERS Safety Report 20609950 (Version 5)
Quarter: 2022Q2

REPORT INFORMATION
  Report Type: Spontaneous
  Country: CA (occurrence: CA)
  Receive Date: 20220318
  Receipt Date: 20220510
  Transmission Date: 20220721
  Serious: Yes (Other)
  Sender: FDA-Public Use
  Company Number: CA-CELLTRION INC.-2022CA003239

PATIENT

DRUGS (9)
  1. INFLECTRA [Suspect]
     Active Substance: INFLIXIMAB-DYYB
     Indication: Crohn^s disease
     Dosage: 5 MG/KG, WEEK 0,2,6, THEN EVERY 8 WEEKS
     Route: 042
     Dates: start: 20220308, end: 20220308
  2. INFLECTRA [Suspect]
     Active Substance: INFLIXIMAB-DYYB
     Dosage: 5 MG/KG, WEEKS 0,2,6, THEN EVERU 8 WEEKS
     Route: 042
     Dates: start: 20220308
  3. INFLECTRA [Suspect]
     Active Substance: INFLIXIMAB-DYYB
     Dosage: 5 MG/KG, WEEKS 0,2,6, THEN EVERY 8 WEEKS
     Route: 042
     Dates: start: 20220322
  4. INFLECTRA [Suspect]
     Active Substance: INFLIXIMAB-DYYB
     Dosage: 5 MG/KG, WEEKS 0,2,6, THEN EVERY 8 WEEKS
     Route: 042
     Dates: start: 20220422
  5. INFLECTRA [Suspect]
     Active Substance: INFLIXIMAB-DYYB
     Dosage: 5 MG/KG, WEEKS 0,2,6, THEN EVERY 8 WEEKS
     Route: 042
     Dates: start: 20220422
  6. INFLECTRA [Suspect]
     Active Substance: INFLIXIMAB-DYYB
     Dosage: 5 MG/KG, WEEKS 0,2,6, THEN EVERY 8 WEEKS
     Route: 042
     Dates: start: 20220422
  7. DIPHENHYDRAMINE [Concomitant]
     Active Substance: DIPHENHYDRAMINE
     Indication: Premedication
     Dosage: 50 MG
     Route: 048
     Dates: start: 20220422, end: 20220422
  8. HYDROCORTISONE [Concomitant]
     Active Substance: HYDROCORTISONE
     Indication: Premedication
     Dosage: 100 MG
     Route: 042
     Dates: start: 20220422, end: 20220422
  9. LAMIVUDINE [Concomitant]
     Active Substance: LAMIVUDINE
     Dosage: UNK

REACTIONS (21)
  - Nausea [Recovering/Resolving]
  - Drug ineffective [Unknown]
  - Fatigue [Unknown]
  - Dizziness [Unknown]
  - Malaise [Unknown]
  - Product after taste [Unknown]
  - Inflammation [Not Recovered/Not Resolved]
  - Abdominal distension [Not Recovered/Not Resolved]
  - Dyspnoea [Not Recovered/Not Resolved]
  - Discomfort [Not Recovered/Not Resolved]
  - Migraine [Recovered/Resolved]
  - Feeling abnormal [Not Recovered/Not Resolved]
  - Eye swelling [Not Recovered/Not Resolved]
  - Swelling face [Recovered/Resolved]
  - Abdominal tenderness [Recovered/Resolved]
  - Lacrimation increased [Recovered/Resolved]
  - Condition aggravated [Not Recovered/Not Resolved]
  - Myalgia [Unknown]
  - Headache [Recovered/Resolved]
  - Face oedema [Unknown]
  - Dyspnoea exertional [Not Recovered/Not Resolved]

NARRATIVE: CASE EVENT DATE: 20220301
